FAERS Safety Report 9990722 (Version 1)
Quarter: 2014Q1

REPORT INFORMATION
  Report Type: Report from Study
  Country: US (occurrence: US)
  Receive Date: 20140310
  Receipt Date: 20140310
  Transmission Date: 20141002
  Serious: No
  Sender: FDA-Public Use
  Company Number: US-ABBVIE-13P-163-1137164-00

PATIENT
  Age: 56 Year
  Sex: Female

DRUGS (7)
  1. HUMIRA [Suspect]
     Indication: CROHN^S DISEASE
     Dates: start: 20130802, end: 20130802
  2. HUMIRA [Suspect]
     Dates: start: 20130816, end: 20130816
  3. HUMIRA [Suspect]
  4. PREDNISONE [Concomitant]
     Indication: CROHN^S DISEASE
     Dosage: 40 MG DAILY
     Dates: start: 201307
  5. EFFEXOR [Concomitant]
     Indication: DEPRESSION
  6. PRILOSEC [Concomitant]
     Indication: GASTROOESOPHAGEAL REFLUX DISEASE
  7. ZOFRAN [Concomitant]
     Indication: NAUSEA

REACTIONS (6)
  - Pharyngeal oedema [Not Recovered/Not Resolved]
  - Dysphonia [Not Recovered/Not Resolved]
  - Dysphagia [Not Recovered/Not Resolved]
  - Local swelling [Not Recovered/Not Resolved]
  - Snoring [Not Recovered/Not Resolved]
  - Cushingoid [Not Recovered/Not Resolved]
